FAERS Safety Report 4356101-X (Version None)
Quarter: 2004Q2

REPORT INFORMATION
  Report Type: 
  Country: None (occurrence: None)
  Receive Date: 20040511
  Receipt Date: 20040309
  Transmission Date: 20050107
  Serious: Yes (Hospitalization)
  Sender: FDA-Public Use
  Company Number: FR-GLAXOSMITHKLINE-B0326578A

PATIENT
  Age: 39 Year
  Sex: Male

DRUGS (2)
  1. ZEFFIX [Suspect]
     Dosage: 100MG PER DAY
     Route: 048
     Dates: start: 20000101
  2. AVLOCARDYL [Concomitant]
     Dosage: 160MG PER DAY
     Dates: start: 20000601

REACTIONS (4)
  - GINGIVAL BLEEDING [None]
  - HAEMATOMA [None]
  - NEUTROPENIA [None]
  - THROMBOCYTOPENIA [None]
